FAERS Safety Report 19313957 (Version 1)
Quarter: 2021Q2

REPORT INFORMATION
  Report Type: Spontaneous
  Country: CA (occurrence: CA)
  Receive Date: 20210527
  Receipt Date: 20210527
  Transmission Date: 20210717
  Serious: Yes (Other)
  Sender: FDA-Public Use
  Company Number: CA-CELLTRION INC.-2020CA035003

PATIENT

DRUGS (5)
  1. INFLECTRA [Suspect]
     Active Substance: INFLIXIMAB-DYYB
     Indication: CROHN^S DISEASE
     Dosage: 500 MG, (5 MG/KG) Q 0, 2, 6 WEEKS, THEN EVERY 8 WEEKS
     Route: 042
     Dates: start: 20201029, end: 20201029
  2. INFLECTRA [Suspect]
     Active Substance: INFLIXIMAB-DYYB
     Dosage: 500 MG, AT WEEK 0 DOSE OF REINDUCTION
     Route: 042
     Dates: start: 20210310, end: 20210310
  3. INFLECTRA [Suspect]
     Active Substance: INFLIXIMAB-DYYB
     Dosage: 500 MG, AT WEEK 0 DOSE OF REINDUCTION
     Route: 042
     Dates: start: 20210310, end: 20210310
  4. INFLECTRA [Suspect]
     Active Substance: INFLIXIMAB-DYYB
     Dosage: 500 MG, AT WEEK 2 DOSE OF REINDUCTION
     Route: 042
     Dates: start: 20210324, end: 20210324
  5. INFLECTRA [Suspect]
     Active Substance: INFLIXIMAB-DYYB
     Dosage: 500 MG, (5 MG/KG) Q 0, 2, 6 WEEKS, THEN EVERY 8 WEEKS
     Route: 042
     Dates: start: 20201112, end: 20201112

REACTIONS (17)
  - Joint injury [Unknown]
  - Off label use [Unknown]
  - Intentional product use issue [Unknown]
  - Malaise [Unknown]
  - Joint swelling [Unknown]
  - Injection site discolouration [Unknown]
  - Weight decreased [Unknown]
  - Fall [Unknown]
  - Paranoia [Unknown]
  - Schizophrenia [Unknown]
  - Condition aggravated [Unknown]
  - Anxiety [Unknown]
  - Pain [Unknown]
  - Injection site swelling [Unknown]
  - Joint swelling [Unknown]
  - Incorrect dose administered [Unknown]
  - Crying [Unknown]

NARRATIVE: CASE EVENT DATE: 202103
